FAERS Safety Report 6768002-8 (Version None)
Quarter: 2010Q2

REPORT INFORMATION
  Report Type: 
  Country: None (occurrence: None)
  Receive Date: 20100614
  Receipt Date: 20100609
  Transmission Date: 20101027
  Serious: Yes (Hospitalization)
  Sender: FDA-Public Use
  Company Number: A0864142A

PATIENT
  Age: 61 Year
  Sex: Female
  Weight: 105 kg

DRUGS (11)
  1. AVANDIA [Suspect]
     Indication: DIABETES MELLITUS
     Dosage: 8MG PER DAY
     Route: 048
     Dates: start: 20000101, end: 20070501
  2. METFORMIN HCL [Concomitant]
  3. DILTIAZEM [Concomitant]
  4. SINGULAIR [Concomitant]
  5. GLIPIZIDE [Concomitant]
  6. PREDNISONE [Concomitant]
  7. AMBIEN [Concomitant]
  8. XOPENEX [Concomitant]
  9. INSULIN [Concomitant]
  10. ADVAIR DISKUS 100/50 [Concomitant]
  11. LISINOPRIL [Concomitant]

REACTIONS (2)
  - CARDIAC FAILURE CONGESTIVE [None]
  - MYOCARDIAL INFARCTION [None]
